FAERS Safety Report 7833818-3 (Version None)
Quarter: 2011Q4

REPORT INFORMATION
  Report Type: 
  Country: None (occurrence: None)
  Receive Date: 20111024
  Receipt Date: 20111018
  Transmission Date: 20120403
  Serious: Yes (Death)
  Sender: FDA-Public Use
  Company Number: US-GLAXOSMITHKLINE-A0936723A

PATIENT
  Age: 81 Year
  Sex: Female
  Weight: 42.3 kg

DRUGS (7)
  1. SIMVASTATIN [Concomitant]
  2. CALCIUM CARBONATE [Concomitant]
  3. XELODA [Concomitant]
  4. ADVAIR DISKUS 100/50 [Concomitant]
  5. TYKERB [Suspect]
     Dosage: 1250MG PER DAY
     Route: 048
     Dates: start: 20110330
  6. PANTOPRAZOLE SODIUM [Concomitant]
  7. ZETIA [Concomitant]

REACTIONS (2)
  - BREAST CANCER METASTATIC [None]
  - METASTASES TO STOMACH [None]
